FAERS Safety Report 7217694-8 (Version None)
Quarter: 2011Q1

REPORT INFORMATION
  Report Type: 
  Country: None (occurrence: None)
  Receive Date: 20110110
  Receipt Date: 20101230
  Transmission Date: 20110831
  Serious: Yes (Other)
  Sender: FDA-Public Use
  Company Number: US-ASTRAZENECA-2010SE61504

PATIENT
  Sex: Female

DRUGS (3)
  1. SEROQUEL [Suspect]
     Route: 048
     Dates: start: 20101229, end: 20101229
  2. IRON SUPPLEMENT [Concomitant]
     Indication: IRON DEFICIENCY
     Dosage: DAILY
     Route: 048
  3. SYNTHROID [Concomitant]
     Indication: HYPERTHYROIDISM
     Dosage: DAILY
     Route: 048

REACTIONS (2)
  - FALL [None]
  - SYNCOPE [None]
